FAERS Safety Report 9456293 (Version 1)
Quarter: 2013Q3

REPORT INFORMATION
  Report Type: Spontaneous
  Country: GB (occurrence: GB)
  Receive Date: 20130813
  Receipt Date: 20130813
  Transmission Date: 20140515
  Serious: Yes (Life-Threatening, Other)
  Sender: FDA-Public Use
  Company Number: GB-WATSON-2013-14146

PATIENT
  Age: 69 Year
  Sex: Male

DRUGS (2)
  1. METOCLOPRAMIDE HYDROCHLORIDE (WATSON LABORATORIES) [Suspect]
     Indication: NAUSEA
     Dosage: 10 MG, UNKNOWN
     Route: 042
     Dates: start: 20130717, end: 20130717
  2. INSULIN [Concomitant]
     Indication: DIABETES MELLITUS
     Route: 065

REACTIONS (2)
  - Apnoea [Unknown]
  - Confusional state [Unknown]
